FAERS Safety Report 5883174-5 (Version None)
Quarter: 2008Q3

REPORT INFORMATION
  Report Type: 
  Country: None (occurrence: None)
  Receive Date: 20080914
  Receipt Date: 20080904
  Transmission Date: 20090109
  Serious: Yes (Other)
  Sender: FDA-Public Use
  Company Number: GB-BAUSCH-2008BL003869

PATIENT
  Age: 7 Year
  Sex: Female

DRUGS (2)
  1. PREDNISOLONE [Suspect]
     Indication: EVANS SYNDROME
  2. RITUXIMAB [Suspect]
     Indication: EVANS SYNDROME

REACTIONS (2)
  - LYMPHOPROLIFERATIVE DISORDER [None]
  - PULMONARY HYPERTENSION [None]
